FAERS Safety Report 21866715 (Version 4)
Quarter: 2023Q1

REPORT INFORMATION
  Report Type: Report from Study
  Country: DE (occurrence: DE)
  Receive Date: 20230116
  Receipt Date: 20230307
  Transmission Date: 20230418
  Serious: Yes (Hospitalization, Disabling, Other)
  Sender: FDA-Public Use
  Company Number: DE-ASTELLAS-2023US001246

PATIENT
  Age: 77 Year
  Sex: Male

DRUGS (7)
  1. ENFORTUMAB VEDOTIN [Suspect]
     Active Substance: ENFORTUMAB VEDOTIN
     Indication: Bladder cancer
     Dosage: 1.25 MG/KG, OTHER (ONCE/SINGLE ADMINISTRATION)
     Route: 042
     Dates: start: 20221213, end: 20221213
  2. ENFORTUMAB VEDOTIN [Suspect]
     Active Substance: ENFORTUMAB VEDOTIN
     Dosage: 1.25 MG/KG, OTHER (ONCE/SINGLE ADMINISTRATION)
     Route: 042
     Dates: start: 20221220, end: 20221220
  3. DURVALUMAB [Suspect]
     Active Substance: DURVALUMAB
     Indication: Bladder cancer
     Dosage: 1500 MG, OTHER (ONCE/SINGLE ADMINISTRATION)
     Route: 042
     Dates: start: 20221213, end: 20221213
  4. TREMELIMUMAB [Suspect]
     Active Substance: TREMELIMUMAB
     Indication: Bladder cancer
     Dosage: 75 MG, OTHER (ONCE/SINGLE ADMINISTRATION)
     Route: 042
     Dates: start: 20221213, end: 20221213
  5. Dexeryl [Concomitant]
     Indication: Pruritus
     Route: 003
     Dates: start: 20221220
  6. MCP [Concomitant]
     Active Substance: METOCLOPRAMIDE HYDROCHLORIDE
     Indication: Nausea
     Dosage: 1 MG/ML, AS NEEDED (3 TIMES DAILY)
     Route: 048
     Dates: start: 20221228
  7. NOBILIN PREMIUM [Concomitant]
     Indication: Nutritional supplementation
     Dosage: UNK UNK, OTHER (DAILY)
     Route: 048
     Dates: start: 1997

REACTIONS (1)
  - Drug-induced liver injury [Recovered/Resolved]

NARRATIVE: CASE EVENT DATE: 20230103
